FAERS Safety Report 22095465 (Version 3)
Quarter: 2023Q2

REPORT INFORMATION
  Report Type: Spontaneous
  Country: US (occurrence: US)
  Receive Date: 20230314
  Receipt Date: 20230519
  Transmission Date: 20230721
  Serious: Yes (Hospitalization, Other)
  Sender: FDA-Public Use
  Company Number: US-PFIZER INC-PV202300046523

PATIENT
  Age: 59 Year
  Sex: Female

DRUGS (2)
  1. INLYTA [Suspect]
     Active Substance: AXITINIB
     Dosage: 5 MG
  2. KEYTRUDA [Suspect]
     Active Substance: PEMBROLIZUMAB
     Dosage: UNK, (INFUSION)
     Dates: start: 20230306

REACTIONS (4)
  - Uterine haemorrhage [Recovering/Resolving]
  - Heavy menstrual bleeding [Recovering/Resolving]
  - Fatigue [Unknown]
  - Lethargy [Unknown]
